FAERS Safety Report 20240632 (Version 2)
Quarter: 2025Q2

REPORT INFORMATION
  Report Type: Spontaneous
  Country: US (occurrence: US)
  Receive Date: 20211228
  Receipt Date: 20250630
  Transmission Date: 20250717
  Serious: No
  Sender: PURDUE
  Company Number: US-PURDUE-USA-2020-0222408

PATIENT
  Sex: Male

DRUGS (1)
  1. OXYCONTIN [Suspect]
     Active Substance: OXYCODONE HYDROCHLORIDE
     Indication: Product used for unknown indication
     Route: 048

REACTIONS (1)
  - Unevaluable event [Unknown]
